FAERS Safety Report 15227097 (Version 1)
Quarter: 2018Q3

REPORT INFORMATION
  Report Type: Spontaneous
  Country: US (occurrence: US)
  Receive Date: 20180706
  Receipt Date: 20180706
  Transmission Date: 20181010
  Serious: Yes (Life-Threatening, Other)
  Sender: FDA-Public Use
  Company Number: None

PATIENT
  Age: 28 Year
  Sex: Female
  Weight: 58.5 kg

DRUGS (1)
  1. BUPRENORHPHINE/NALOXONE TABLETS [Suspect]
     Active Substance: BUPRENORPHINE\NALOXONE
     Indication: DRUG DEPENDENCE
     Route: 060
     Dates: start: 20180628, end: 20180703

REACTIONS (6)
  - Diarrhoea [None]
  - Vomiting [None]
  - Product substitution issue [None]
  - Drug dependence [None]
  - Nausea [None]
  - Product dosage form issue [None]

NARRATIVE: CASE EVENT DATE: 20180628
